FAERS Safety Report 5962901-2 (Version None)
Quarter: 2008Q4

REPORT INFORMATION
  Report Type: 
  Country: None (occurrence: None)
  Receive Date: 20081119
  Receipt Date: 20081119
  Transmission Date: 20090506
  Serious: Yes (Hospitalization)
  Sender: FDA-Public Use
  Company Number: None

PATIENT
  Sex: Male
  Weight: 29 kg

DRUGS (3)
  1. CYTARABINE [Suspect]
     Dosage: 8240 MG
  2. IDARUBICIN HCL [Suspect]
     Dosage: 36 MG
  3. LESTAURTINIB [Suspect]
     Dosage: 768 MG

REACTIONS (4)
  - NEUTROPHIL COUNT DECREASED [None]
  - PLATELET COUNT DECREASED [None]
  - RASH PRURITIC [None]
  - WHITE BLOOD CELL COUNT DECREASED [None]
